FAERS Safety Report 4484416-3 (Version None)
Quarter: 2004Q4

REPORT INFORMATION
  Report Type: 
  Country: None (occurrence: None)
  Receive Date: 20041025
  Receipt Date: 20041015
  Transmission Date: 20050328
  Serious: Yes (Hospitalization)
  Sender: FDA-Public Use
  Company Number: PHNR2004AU01523

PATIENT
  Age: 76 Year
  Sex: Female

DRUGS (8)
  1. VISKEN [Suspect]
     Indication: PALPITATIONS
     Dosage: 30 MG DAILY
     Route: 048
     Dates: start: 20031214
  2. ALENDRONATE SODIUM [Concomitant]
     Dosage: 70 MG DAILY
     Route: 048
  3. FLUVOXAMINE MALEATE [Concomitant]
     Dosage: 100 MG DAILY
     Route: 048
  4. PARACETAMOL [Concomitant]
     Dosage: 1 G DAILY
     Route: 048
  5. OMEPRAZOLE [Concomitant]
     Dosage: 20 MG DAILY
     Route: 048
  6. CALCIUM CARBONATE [Concomitant]
     Route: 048
  7. CODEINE [Concomitant]
     Dosage: 30 MG DAILY
     Route: 048
  8. PROCHLORPERAZINE MALEATE [Concomitant]
     Route: 048

REACTIONS (1)
  - ORTHOSTATIC HYPOTENSION [None]
